FAERS Safety Report 24587713 (Version 2)
Quarter: 2024Q4

REPORT INFORMATION
  Report Type: Spontaneous
  Country: GB (occurrence: GB)
  Receive Date: 20241107
  Receipt Date: 20241115
  Transmission Date: 20250115
  Serious: Yes (Other)
  Sender: HIKMA
  Company Number: GB-HIKMA PHARMACEUTICALS USA INC.-GB-H14001-24-10109

PATIENT
  Age: 1 Year
  Sex: Female

DRUGS (2)
  1. KEPPRA [Suspect]
     Active Substance: LEVETIRACETAM
     Indication: Product used for unknown indication
     Dosage: UNKNOWN
     Route: 065
  2. LEVETIRACETAM [Suspect]
     Active Substance: LEVETIRACETAM
     Dosage: NOT APPLICABLE (COMPANY^S SUSPECT PRODUCT NOT ADMINISTERED)

REACTIONS (1)
  - Dystonia [Unknown]
